FAERS Safety Report 12167922 (Version 2)
Quarter: 2016Q2

REPORT INFORMATION
  Report Type: Spontaneous
  Country: BR (occurrence: BR)
  Receive Date: 20160310
  Receipt Date: 20160502
  Transmission Date: 20160815
  Serious: Yes (Death, Hospitalization)
  Sender: FDA-Public Use
  Company Number: BR-PFIZER INC-2016129968

PATIENT
  Age: 64 Year
  Sex: Male
  Weight: 47.5 kg

DRUGS (1)
  1. SUTENT [Suspect]
     Active Substance: SUNITINIB MALATE
     Indication: METASTATIC RENAL CELL CARCINOMA
     Dosage: 50 MG, CYCLE 2X1
     Route: 048
     Dates: start: 201511, end: 20160225

REACTIONS (4)
  - Death [Fatal]
  - Lung disorder [Unknown]
  - Feeling abnormal [Unknown]
  - Cough [Unknown]

NARRATIVE: CASE EVENT DATE: 20160303
